FAERS Safety Report 26158370 (Version 1)
Quarter: 2025Q4

REPORT INFORMATION
  Report Type: Spontaneous
  Country: CN (occurrence: CN)
  Receive Date: 20251215
  Receipt Date: 20251215
  Transmission Date: 20260117
  Serious: Yes (Other)
  Sender: NOVARTIS
  Company Number: CN-002147023-NVSC2025CN190639

PATIENT
  Age: 32 Year
  Sex: Female

DRUGS (7)
  1. CYCLOSPORINE [Suspect]
     Active Substance: CYCLOSPORINE
     Indication: Infection
     Dosage: UNK (ALL DOSES ARE PRECISELY ADJUSTED)
     Route: 048
  2. CLINDAMYCIN [Concomitant]
     Active Substance: CLINDAMYCIN
     Indication: Infection
     Dosage: UNK
     Route: 042
  3. PIPERACILLIN [Concomitant]
     Active Substance: PIPERACILLIN
     Indication: Infection
     Dosage: UNK
     Route: 042
  4. ASPIRIN [Concomitant]
     Active Substance: ASPIRIN
     Indication: Infection
     Dosage: UNK (ALL DOSES ARE PRECISELY ADJUSTED)
     Route: 048
  5. METHYLPREDNISOLONE [Concomitant]
     Active Substance: METHYLPREDNISOLONE
     Indication: Infection
     Dosage: UNK (ALL DOSES ARE PRECISELY ADJUSTED)
     Route: 048
  6. MAGNESIUM SULFATE [Concomitant]
     Active Substance: MAGNESIUM SULFATE
     Indication: Uterine contractions abnormal
     Dosage: UNK
     Route: 065
  7. DYDROGESTERONE [Concomitant]
     Active Substance: DYDROGESTERONE
     Indication: Tocolysis
     Dosage: UNK
     Route: 065

REACTIONS (5)
  - Abortion threatened [Unknown]
  - Vaginal haemorrhage [Unknown]
  - Premature rupture of membranes [Unknown]
  - Premature delivery [Unknown]
  - Maternal exposure during pregnancy [Unknown]

NARRATIVE: CASE EVENT DATE: 20240126
